FAERS Safety Report 12422928 (Version 2)
Quarter: 2016Q3

REPORT INFORMATION
  Report Type: Spontaneous
  Country: US (occurrence: US)
  Receive Date: 20160601
  Receipt Date: 20160718
  Transmission Date: 20161109
  Serious: Yes (Other)
  Sender: FDA-Public Use
  Company Number: US-CATALENT PHARMA SOLUTIONS-CAT-000009-2016

PATIENT
  Age: 72 Year
  Sex: Male

DRUGS (3)
  1. ARICEPT [Concomitant]
     Active Substance: DONEPEZIL HYDROCHLORIDE
     Indication: DEMENTIA ALZHEIMER^S TYPE
     Dosage: UNK
     Route: 065
  2. VALPROIC ACID. [Suspect]
     Active Substance: VALPROIC ACID
     Indication: DEMENTIA ALZHEIMER^S TYPE
     Dosage: 750 MG, EVERY NIGHT
     Route: 048
     Dates: start: 2015, end: 2016
  3. VALPROIC ACID. [Suspect]
     Active Substance: VALPROIC ACID
     Indication: ANGER

REACTIONS (6)
  - Tremor [Recovering/Resolving]
  - Product use issue [Recovered/Resolved]
  - Gait disturbance [Recovering/Resolving]
  - Coordination abnormal [Recovering/Resolving]
  - Insomnia [Recovering/Resolving]
  - Asthenia [Recovering/Resolving]

NARRATIVE: CASE EVENT DATE: 2015
